FAERS Safety Report 16696245 (Version 1)
Quarter: 2019Q3

REPORT INFORMATION
  Report Type: Report from Study
  Country: ES (occurrence: ES)
  Receive Date: 20190813
  Receipt Date: 20190813
  Transmission Date: 20191004
  Serious: Yes (Hospitalization)
  Sender: FDA-Public Use
  Company Number: ES-SUN PHARMACEUTICAL INDUSTRIES LTD-2019RR-217103

PATIENT
  Age: 67 Year
  Sex: Female

DRUGS (15)
  1. LETROZOLE. [Suspect]
     Active Substance: LETROZOLE
     Dosage: 2 MILLIGRAM, QD
     Route: 048
     Dates: start: 20180427, end: 20180524
  2. PALBOCICLIB [Suspect]
     Active Substance: PALBOCICLIB
     Dosage: 125 MILLIGRAM, QD
     Route: 048
     Dates: start: 20180503, end: 20180517
  3. LETROZOLE. [Suspect]
     Active Substance: LETROZOLE
     Dosage: 2 MILLIGRAM, DAILY
     Route: 048
     Dates: start: 20180726
  4. PALBOCICLIB [Suspect]
     Active Substance: PALBOCICLIB
     Dosage: 100 MILLIGRAM, QD
     Route: 048
     Dates: start: 20180726, end: 20180815
  5. TRASTUZUMAB. [Concomitant]
     Active Substance: TRASTUZUMAB
     Indication: PRODUCT USED FOR UNKNOWN INDICATION
     Dosage: UNK
     Route: 065
     Dates: start: 20180601
  6. PERTUZUMAB. [Concomitant]
     Active Substance: PERTUZUMAB
     Indication: PRODUCT USED FOR UNKNOWN INDICATION
     Dosage: UNK
     Route: 065
     Dates: start: 20180601
  7. LETROZOLE. [Suspect]
     Active Substance: LETROZOLE
     Dosage: 2 MILLIGRAM
     Dates: start: 20180815
  8. LETROZOLE. [Suspect]
     Active Substance: LETROZOLE
     Indication: BREAST CANCER METASTATIC
     Dosage: 2 MILLIGRAM, QD
     Route: 065
     Dates: start: 20180328
  9. LETROZOLE. [Suspect]
     Active Substance: LETROZOLE
     Dosage: 2 MILLIGRAM, QD
     Route: 048
     Dates: start: 20180525, end: 20180620
  10. PALBOCICLIB [Suspect]
     Active Substance: PALBOCICLIB
     Indication: BREAST CANCER METASTATIC
     Dosage: 125 MILLIGRAM, QD
     Route: 048
     Dates: start: 20180328
  11. LETROZOLE. [Suspect]
     Active Substance: LETROZOLE
     Dosage: 2 MILLIGRAM, QD
     Route: 048
     Dates: start: 20180621, end: 20180725
  12. PALBOCICLIB [Suspect]
     Active Substance: PALBOCICLIB
     Dosage: 125 MILLIGRAM, QD
     Route: 048
     Dates: start: 20180427, end: 20180501
  13. PALBOCICLIB [Suspect]
     Active Substance: PALBOCICLIB
     Dosage: 125 MILLIGRAM, DAILY
     Dates: start: 20180525, end: 20180614
  14. PALBOCICLIB [Suspect]
     Active Substance: PALBOCICLIB
     Dosage: 125 MILLIGRAM
     Route: 048
     Dates: start: 20180621, end: 20180711
  15. PALBOCICLIB [Suspect]
     Active Substance: PALBOCICLIB
     Dosage: 100 MILLIGRAM, QD
     Route: 048
     Dates: start: 20180823

REACTIONS (6)
  - White blood cells urine positive [Unknown]
  - Pyrexia [Unknown]
  - Urinary tract infection [Recovered/Resolved]
  - Urinary tract infection [Recovered/Resolved]
  - Urinary tract infection [Recovered/Resolved]
  - Red blood cells urine positive [Unknown]

NARRATIVE: CASE EVENT DATE: 20180518
